FAERS Safety Report 6328624-5 (Version None)
Quarter: 2009Q3

REPORT INFORMATION
  Report Type: 
  Country: None (occurrence: None)
  Receive Date: 20090826
  Receipt Date: 20070502
  Transmission Date: 20100115
  Serious: Yes (Other)
  Sender: FDA-Public Use
  Company Number: US-ASTRAZENECA-2006UW23963

PATIENT
  Age: 10923 Day
  Sex: Female
  Weight: 68.9 kg

DRUGS (13)
  1. SEROQUEL [Suspect]
     Indication: BIPOLAR DISORDER
     Route: 048
     Dates: start: 19990202
  2. SEROQUEL [Suspect]
     Indication: DEPRESSION
     Route: 048
     Dates: start: 19990202
  3. SEROQUEL [Suspect]
     Indication: PARANOID PERSONALITY DISORDER
     Route: 048
     Dates: start: 19990202
  4. GEODON [Concomitant]
  5. HALDOL [Concomitant]
  6. RISPERDAL [Concomitant]
     Dosage: 0.5MG -3MG
     Dates: start: 20010609
  7. ZYPREXA [Concomitant]
     Dosage: 10MG-20MG
     Dates: start: 20000208
  8. ZOLOFT [Concomitant]
     Dosage: 100MG-150MG
     Dates: start: 20000208
  9. XANAX [Concomitant]
     Dosage: 0.5MG, HALF TAB TWICE A DAY
     Dates: start: 19990209
  10. LEXAPRO [Concomitant]
     Dosage: 10MG -30MG
     Dates: start: 20040902
  11. TRAZODONE HCL [Concomitant]
     Dates: start: 20040905
  12. VISTARIL [Concomitant]
     Dates: start: 20000208
  13. TOPAMAX [Concomitant]
     Dates: start: 20040922

REACTIONS (3)
  - DIABETES MELLITUS [None]
  - DIABETIC FOOT [None]
  - TYPE 2 DIABETES MELLITUS [None]
